FAERS Safety Report 7290230-6 (Version None)
Quarter: 2011Q1

REPORT INFORMATION
  Report Type: 
  Country: None (occurrence: None)
  Receive Date: 20110214
  Receipt Date: 20110203
  Transmission Date: 20110831
  Serious: Yes (Other)
  Sender: FDA-Public Use
  Company Number: US-ASTRAZENECA-2011SE06592

PATIENT
  Age: 55 Year
  Sex: Female

DRUGS (1)
  1. NEXIUM [Suspect]
     Route: 048

REACTIONS (5)
  - VOCAL CORD DISORDER [None]
  - COMA [None]
  - OESOPHAGEAL PAIN [None]
  - DRUG DOSE OMISSION [None]
  - GASTRIC HAEMORRHAGE [None]
